FAERS Safety Report 6912253-6 (Version None)
Quarter: 2010Q3

REPORT INFORMATION
  Report Type: 
  Country: None (occurrence: None)
  Receive Date: 20100806
  Receipt Date: 20080129
  Transmission Date: 20110219
  Serious: Yes (Other)
  Sender: FDA-Public Use
  Company Number: US-PFIZER INC-2008002516

PATIENT
  Sex: Female
  Weight: 50 kg

DRUGS (2)
  1. DILANTIN [Suspect]
     Indication: EPILEPSY
  2. DEPAKOTE [Concomitant]

REACTIONS (8)
  - AFFECT LABILITY [None]
  - CONVULSION [None]
  - FEELING HOT [None]
  - HEADACHE [None]
  - MENSTRUATION DELAYED [None]
  - OCULAR HYPERAEMIA [None]
  - SOMNOLENCE [None]
  - TREMOR [None]
